FAERS Safety Report 15316120 (Version 2)
Quarter: 2020Q3

REPORT INFORMATION
  Report Type: Spontaneous
  Country: IT (occurrence: IT)
  Receive Date: 20180824
  Receipt Date: 20180904
  Transmission Date: 20201105
  Serious: Yes (Hospitalization, Other)
  Sender: FDA-Public Use
  Company Number: IND-IT-009507513-1808ITA008427

PATIENT
  Age: 88 Year
  Sex: Female
  Weight: 61 kg

DRUGS (2)
  1. ETORICOXIB. [Suspect]
     Active Substance: ETORICOXIB
     Dosage: 90 MG, QD
     Route: 048
     Dates: start: 20180515, end: 20180721
  2. TORVAST [Concomitant]
     Active Substance: ATORVASTATIN
     Dosage: 80 MG, UNK
     Dates: end: 20180721

REACTIONS (4)
  - Hepatitis acute [Recovering/Resolving]
  - Depressed level of consciousness [Recovering/Resolving]
  - Cytopenia [Recovering/Resolving]
  - Acute kidney injury [Recovering/Resolving]

NARRATIVE: CASE EVENT DATE: 20180721
